FAERS Safety Report 7713981-5 (Version None)
Quarter: 2011Q3

REPORT INFORMATION
  Report Type: 
  Country: None (occurrence: None)
  Receive Date: 20110826
  Receipt Date: 20110819
  Transmission Date: 20111222
  Serious: Yes (Disabling)
  Sender: FDA-Public Use
  Company Number: CA-MERCK-1108USA02287

PATIENT
  Age: 38 Year
  Sex: Male
  Weight: 80 kg

DRUGS (2)
  1. PROPECIA [Suspect]
     Route: 048
  2. SYNTHROID [Concomitant]
     Route: 065

REACTIONS (2)
  - PREMATURE EJACULATION [None]
  - ERECTILE DYSFUNCTION [None]
